FAERS Safety Report 6468997-6 (Version None)
Quarter: 2009Q4

REPORT INFORMATION
  Report Type: 
  Country: None (occurrence: None)
  Receive Date: 20091203
  Receipt Date: 20091123
  Transmission Date: 20100525
  Serious: Yes (Other)
  Sender: FDA-Public Use
  Company Number: PHEH2009US16687

PATIENT
  Age: 44 Year
  Sex: Male
  Weight: 72.562 kg

DRUGS (3)
  1. GLEEVEC [Suspect]
     Indication: CHRONIC MYELOID LEUKAEMIA
     Dosage: 600 MG, QD
     Route: 048
     Dates: start: 20091029
  2. TOPROL-XL [Concomitant]
  3. ALLOPURINOL [Concomitant]

REACTIONS (1)
  - HAEMATOCHEZIA [None]
